FAERS Safety Report 9583070 (Version 1)
Quarter: 2013Q4

REPORT INFORMATION
  Report Type: Spontaneous
  Country: US (occurrence: US)
  Receive Date: 20131002
  Receipt Date: 20131002
  Transmission Date: 20140711
  Serious: No
  Sender: FDA-Public Use
  Company Number: US-AMGEN-USASP2013045675

PATIENT
  Age: 46 Year
  Sex: Female
  Weight: 33.56 kg

DRUGS (11)
  1. ENBREL [Suspect]
     Indication: PRODUCT USED FOR UNKNOWN INDICATION
     Dosage: 50 MG, QWK
     Route: 058
  2. ATENOLOL [Concomitant]
     Dosage: 50 MG, UNK
  3. CLOBETASOL [Concomitant]
     Dosage: UNK
  4. ASPIRIN [Concomitant]
     Dosage: 325 MG, UNK
  5. IBUPROFEN [Concomitant]
     Dosage: 200 MG, UNK
  6. FLONASE [Concomitant]
     Dosage: UNK
  7. CYCLOBENZAPRINE [Concomitant]
     Dosage: 5 MG, UNK
  8. VERAPAMIL [Concomitant]
     Dosage: 120 MG,ER
  9. BUSPIRONE [Concomitant]
     Dosage: 7.5 MG, UNK
  10. IRON [Concomitant]
     Dosage: UNK
  11. MAGNESIUM [Concomitant]
     Dosage: 300 MG, UNK

REACTIONS (2)
  - Fatigue [Unknown]
  - Somnolence [Unknown]
